FAERS Safety Report 8906342 (Version 1)
Quarter: 2012Q4

REPORT INFORMATION
  Report Type: Spontaneous
  Country: NL (occurrence: None)
  Receive Date: 20121107
  Receipt Date: 20121107
  Transmission Date: 20130627
  Serious: Yes (Death, Hospitalization)
  Sender: FDA-Public Use
  Company Number: 2012-6529

PATIENT
  Age: 64 Year
  Sex: Male

DRUGS (1)
  1. SOMATULINE [Suspect]
     Indication: NEUROENDOCRINE TUMOR
     Dates: start: 20101019, end: 20121018

REACTIONS (2)
  - Neoplasm [None]
  - Metastasis [None]
